FAERS Safety Report 21053542 (Version 2)
Quarter: 2022Q3

REPORT INFORMATION
  Report Type: Report from Study
  Country: PH (occurrence: PH)
  Receive Date: 20220707
  Receipt Date: 20220816
  Transmission Date: 20221026
  Serious: Yes (Hospitalization)
  Sender: FDA-Public Use
  Company Number: PH-SA-0002046542

PATIENT
  Age: 62 Year
  Sex: Male
  Weight: 57.8 kg

DRUGS (10)
  1. INSULIN GLARGINE\LIXISENATIDE [Suspect]
     Active Substance: INSULIN GLARGINE\LIXISENATIDE
     Indication: Type 2 diabetes mellitus
     Dosage: 16 IU, QD (MORNING )
     Route: 058
     Dates: start: 20210324, end: 20210401
  2. INSULIN GLARGINE\LIXISENATIDE [Suspect]
     Active Substance: INSULIN GLARGINE\LIXISENATIDE
     Dosage: 14 IU, QD(MORNING )
     Route: 058
     Dates: start: 20210402, end: 20210420
  3. EMPAGLIFLOZIN [Concomitant]
     Active Substance: EMPAGLIFLOZIN
     Indication: Diabetes mellitus management
     Dosage: TOTAL DAILY DOSE: 25
     Route: 048
     Dates: start: 20210325
  4. SPIRONOLACTONE [Concomitant]
     Active Substance: SPIRONOLACTONE
     Dosage: TOTAL DAILY DOSE:  25 MG
     Route: 048
     Dates: start: 20210310
  5. FUROSEMIDE [Concomitant]
     Active Substance: FUROSEMIDE
     Dosage: TOTAL DAILY DOSE:  40 MG
     Route: 048
     Dates: start: 20210216
  6. FUROSEMIDE [Concomitant]
     Active Substance: FUROSEMIDE
     Dosage: TOTAL DAILY DOSE:  40 MG
     Route: 042
     Dates: start: 20210623, end: 20210707
  7. ATORVASTATIN [Concomitant]
     Active Substance: ATORVASTATIN
     Dosage: TOTAL DAILY DOSE:  40  MG
     Route: 048
     Dates: start: 20210222
  8. FEBUXOSTAT [Concomitant]
     Active Substance: FEBUXOSTAT
     Dosage: TOTAL DAILY DOSE: 80MG
     Route: 048
     Dates: start: 20210222
  9. AZITHROMYCIN [Concomitant]
     Active Substance: AZITHROMYCIN
     Dosage: TOTAL DAILY DOSE: 500MG
     Route: 048
     Dates: start: 20210623, end: 20210626
  10. PIPERACILLIN AND TAZOBACTAM [Concomitant]
     Active Substance: PIPERACILLIN SODIUM\TAZOBACTAM SODIUM
     Dosage: TOTAL DAILY DOSE: 4500MG
     Route: 042
     Dates: start: 20210623, end: 20210630

REACTIONS (1)
  - Pleural effusion [Recovered/Resolved]

NARRATIVE: CASE EVENT DATE: 20210623
